FAERS Safety Report 6456675-9 (Version None)
Quarter: 2009Q4

REPORT INFORMATION
  Report Type: 
  Country: None (occurrence: None)
  Receive Date: 20091125
  Receipt Date: 20090918
  Transmission Date: 20100525
  Serious: No
  Sender: FDA-Public Use
  Company Number: A0808075A

PATIENT
  Sex: Female

DRUGS (2)
  1. LANOXIN [Suspect]
     Indication: CARDIAC FAILURE
     Route: 048
     Dates: start: 20070101, end: 20090901
  2. NO CONCURRENT MEDICATION [Concomitant]

REACTIONS (1)
  - ALOPECIA [None]
